FAERS Safety Report 19947362 (Version 2)
Quarter: 2021Q4

REPORT INFORMATION
  Report Type: Report from Study
  Country: CH (occurrence: CH)
  Receive Date: 20211012
  Receipt Date: 20211020
  Transmission Date: 20220304
  Serious: Yes (Hospitalization)
  Sender: FDA-Public Use
  Company Number: CH-ROCHE-2895114

PATIENT
  Age: 69 Year
  Sex: Female

DRUGS (4)
  1. ATEZOLIZUMAB [Suspect]
     Active Substance: ATEZOLIZUMAB
     Indication: Pleural mesothelioma malignant
     Dosage: DATE OF LAST DOSE OF STUDY DRUG: 21/SEP/2021 - HEPATOBILIARY DISORDERS HEPATITIS ?DATE OF LAST DOSE
     Route: 041
     Dates: start: 20210809
  2. ATEZOLIZUMAB [Suspect]
     Active Substance: ATEZOLIZUMAB
     Indication: Non-small cell lung cancer
  3. GEMCITABINE [Suspect]
     Active Substance: GEMCITABINE
     Indication: Pleural mesothelioma malignant
     Dosage: DATE OF LAST DOSE OF STUDY DRUG: 28/SEP/2021 - PRIOR TO HEPATOBILIARY DISORDERS HEPATITIS ONSET?DATE
     Route: 042
     Dates: start: 20210809
  4. GEMCITABINE [Suspect]
     Active Substance: GEMCITABINE
     Indication: Non-small cell lung cancer

REACTIONS (2)
  - Pneumonia [Recovered/Resolved]
  - Hepatitis [Recovered/Resolved with Sequelae]

NARRATIVE: CASE EVENT DATE: 20210815
